FAERS Safety Report 24149841 (Version 4)
Quarter: 2025Q1

REPORT INFORMATION
  Report Type: Spontaneous
  Country: PT (occurrence: PT)
  Receive Date: 20240730
  Receipt Date: 20250225
  Transmission Date: 20250409
  Serious: Yes (Hospitalization, Other)
  Sender: AUROBINDO
  Company Number: PT-MYLANLABS-2024M1065888

PATIENT
  Age: 40 Year
  Sex: Female

DRUGS (1)
  1. BROMOCRIPTINE [Suspect]
     Active Substance: BROMOCRIPTINE
     Indication: Lactation disorder
     Dosage: 2.5 MILLIGRAM, ONCE A DAY
     Route: 065

REACTIONS (2)
  - Hepatitis toxic [Recovering/Resolving]
  - Drug-induced liver injury [Recovering/Resolving]
